FAERS Safety Report 25219618 (Version 2)
Quarter: 2025Q2

REPORT INFORMATION
  Report Type: Report from Study
  Country: CA (occurrence: CA)
  Receive Date: 20250421
  Receipt Date: 20250522
  Transmission Date: 20250716
  Serious: Yes (Other)
  Sender: TAKEDA
  Company Number: CA-TAKEDA-2025TUS038395

PATIENT
  Age: 64 Year
  Sex: Female
  Weight: 53.515 kg

DRUGS (2)
  1. VEDOLIZUMAB [Suspect]
     Active Substance: VEDOLIZUMAB
     Indication: Crohn^s disease
  2. IMURAN [Concomitant]
     Active Substance: AZATHIOPRINE

REACTIONS (8)
  - Neuropathy peripheral [Unknown]
  - Perioral dermatitis [Unknown]
  - Pruritus [Unknown]
  - Arthralgia [Unknown]
  - Enteritis [Unknown]
  - Abdominal pain [Unknown]
  - Malaise [Unknown]
  - Blood pressure increased [Unknown]

NARRATIVE: CASE EVENT DATE: 20250320
